FAERS Safety Report 19973916 (Version 1)
Quarter: 2021Q4

REPORT INFORMATION
  Report Type: Spontaneous
  Country: US (occurrence: US)
  Receive Date: 20211020
  Receipt Date: 20211020
  Transmission Date: 20220304
  Serious: Yes (Other)
  Sender: FDA-Public Use
  Company Number: US-MYLANLABS-2021M1074203

PATIENT
  Age: 76 Year
  Sex: Male

DRUGS (4)
  1. CISPLATIN [Suspect]
     Active Substance: CISPLATIN
     Indication: Metastases to peritoneum
     Dosage: UNK
     Route: 033
  2. CISPLATIN [Suspect]
     Active Substance: CISPLATIN
     Indication: Oesophageal adenocarcinoma
  3. MITOMYCIN [Suspect]
     Active Substance: MITOMYCIN
     Indication: Metastases to peritoneum
     Dosage: UNK
     Route: 033
  4. MITOMYCIN [Suspect]
     Active Substance: MITOMYCIN
     Indication: Oesophageal adenocarcinoma

REACTIONS (2)
  - Diaphragm muscle weakness [Not Recovered/Not Resolved]
  - Pulmonary function test decreased [Not Recovered/Not Resolved]
